FAERS Safety Report 7633719-X (Version None)
Quarter: 2011Q3

REPORT INFORMATION
  Report Type: 
  Country: None (occurrence: None)
  Receive Date: 20110725
  Receipt Date: 20110718
  Transmission Date: 20111222
  Serious: Yes (Hospitalization)
  Sender: FDA-Public Use
  Company Number: US-SANOFI-AVENTIS-2011SA045968

PATIENT
  Age: 70 Year
  Sex: Male

DRUGS (6)
  1. FLUOROURACIL [Suspect]
     Dosage: FLUOROURACIL PUSH ON DAY 1
     Route: 042
     Dates: start: 20110616
  2. OXALIPLATIN [Suspect]
     Route: 042
     Dates: start: 20110616, end: 20110616
  3. OXALIPLATIN [Suspect]
     Route: 042
  4. BLINDED THERAPY [Suspect]
     Dosage: DOSE ON DAYS 1- 14 DAYS
     Route: 048
     Dates: start: 20110616
  5. FLUOROURACIL [Suspect]
     Dosage: FREQUENCY- OVER 46-48 HOURS ON DAYS 1 AND 2.
     Route: 042
     Dates: start: 20110616
  6. LEUCOVORIN CALCIUM [Suspect]
     Dosage: FREQUENCY- OVER 2 HOURS ON DAY 1
     Route: 042
     Dates: start: 20110616

REACTIONS (1)
  - MYOCARDIAL INFARCTION [None]
